FAERS Safety Report 8922663 (Version 2)
Quarter: 2013Q1

REPORT INFORMATION
  Report Type: Spontaneous
  Country: US (occurrence: US)
  Receive Date: 20121123
  Receipt Date: 20130104
  Transmission Date: 20140127
  Serious: No
  Sender: FDA-Public Use
  Company Number: US-009507513-1211USA004362

PATIENT
  Sex: Female
  Weight: 99.77 kg

DRUGS (2)
  1. IMPLANON [Suspect]
     Indication: CONTRACEPTION
     Dosage: 1 ROD UP TO 3 YEARS
     Route: 059
     Dates: start: 20110727
  2. IBUPROFEN [Concomitant]
     Indication: PAIN
     Dosage: 500 DF, BID

REACTIONS (6)
  - Endometriosis [Unknown]
  - Amenorrhoea [Unknown]
  - Metrorrhagia [Unknown]
  - Weight increased [Unknown]
  - Chest pain [Unknown]
  - Dyspnoea [Unknown]
